FAERS Safety Report 10310540 (Version 3)
Quarter: 2014Q3

REPORT INFORMATION
  Report Type: Spontaneous
  Country: IE (occurrence: IE)
  Receive Date: 20140717
  Receipt Date: 20140718
  Transmission Date: 20150326
  Serious: Yes (Hospitalization, Other)
  Sender: FDA-Public Use
  Company Number: IE-ABBVIE-14K-229-1252926-00

PATIENT
  Age: 35 Year
  Sex: Female
  Weight: 88 kg

DRUGS (4)
  1. MIRENA [Concomitant]
     Active Substance: LEVONORGESTREL
     Indication: PRODUCT USED FOR UNKNOWN INDICATION
  2. CIMZIA [Suspect]
     Active Substance: CERTOLIZUMAB PEGOL
     Indication: PRODUCT USED FOR UNKNOWN INDICATION
     Dates: start: 20140624
  3. ARCOXIA [Concomitant]
     Active Substance: ETORICOXIB
     Indication: SPONDYLOARTHROPATHY
     Route: 048
  4. HUMIRA [Suspect]
     Active Substance: ADALIMUMAB
     Indication: ANKYLOSING SPONDYLITIS
     Route: 058
     Dates: start: 20140507

REACTIONS (7)
  - Throat tightness [Recovered/Resolved]
  - Chest pain [Unknown]
  - Tremor [Recovered/Resolved]
  - Dyspnoea [Recovered/Resolved]
  - Chest discomfort [Unknown]
  - Palpitations [Recovered/Resolved]
  - Ear discomfort [Recovered/Resolved]

NARRATIVE: CASE EVENT DATE: 20140507
